FAERS Safety Report 9665650 (Version 1)
Quarter: 2013Q4

REPORT INFORMATION
  Report Type: Spontaneous
  Country: US (occurrence: None)
  Receive Date: 20131031
  Receipt Date: 20131031
  Transmission Date: 20140711
  Serious: Yes (Hospitalization)
  Sender: FDA-Public Use
  Company Number: None

PATIENT
  Age: 57 Year
  Sex: Female
  Weight: 55.79 kg

DRUGS (1)
  1. OXALIPLATIN [Suspect]
     Indication: PANCREATIC CARCINOMA METASTATIC
     Dosage: 130MG/M2;D1OF28DCYCLE
     Dates: start: 20080220

REACTIONS (3)
  - Nausea [None]
  - Fatigue [None]
  - Vomiting [None]
